FAERS Safety Report 24081888 (Version 2)
Quarter: 2024Q3

REPORT INFORMATION
  Report Type: Report from Study
  Country: CA (occurrence: CA)
  Receive Date: 20240712
  Receipt Date: 20240723
  Transmission Date: 20241017
  Serious: Yes (Other)
  Sender: Alvotech
  Company Number: CA-JAMP PHARMA CORPORATION-2024-JAM-CA-00565

PATIENT
  Age: 37 Year
  Sex: Female
  Weight: 56.8 kg

DRUGS (3)
  1. SIMLANDI [Suspect]
     Active Substance: ADALIMUMAB-RYVK
     Indication: Hidradenitis
     Dosage: 40 MILLIGRAM, WEEKLY
     Route: 058
     Dates: start: 202403
  2. SIMLANDI [Suspect]
     Active Substance: ADALIMUMAB-RYVK
     Indication: Hidradenitis
     Dosage: 80 MILLIGRAM, SINGLE
     Route: 058
     Dates: start: 202403
  3. SIMLANDI [Suspect]
     Active Substance: ADALIMUMAB-RYVK
     Indication: Hidradenitis
     Dosage: 160 MILLIGRAM, SINGLE
     Route: 058
     Dates: start: 20240314

REACTIONS (5)
  - Syncope [Recovered/Resolved]
  - Slow response to stimuli [Recovered/Resolved]
  - Dyskinesia [Recovered/Resolved]
  - Illness [Unknown]
  - Dizziness [Recovered/Resolved]

NARRATIVE: CASE EVENT DATE: 20240314
